FAERS Safety Report 25013946 (Version 2)
Quarter: 2025Q1

REPORT INFORMATION
  Report Type: Spontaneous
  Country: IT (occurrence: IT)
  Receive Date: 20250226
  Receipt Date: 20250327
  Transmission Date: 20250409
  Serious: Yes (Hospitalization, Other)
  Sender: AUROBINDO
  Company Number: IT-AUROBINDO-AUR-APL-2012-05442

PATIENT
  Age: 20 Year
  Sex: Male

DRUGS (2)
  1. AMOXICILLIN [Suspect]
     Active Substance: AMOXICILLIN
     Indication: Product used for unknown indication
     Route: 065
  2. ASPIRIN [Concomitant]
     Active Substance: ASPIRIN
     Indication: Epstein-Barr virus infection
     Dosage: 500 MG,TWO TIMES A DAY
     Route: 065

REACTIONS (3)
  - Hyperpyrexia [Unknown]
  - Rash maculo-papular [Recovered/Resolved]
  - Arthralgia [Unknown]
